FAERS Safety Report 7124747-1 (Version None)
Quarter: 2010Q4

REPORT INFORMATION
  Report Type: 
  Country: None (occurrence: None)
  Receive Date: 20101123
  Receipt Date: 20101123
  Transmission Date: 20110411
  Serious: Yes (Hospitalization)
  Sender: FDA-Public Use
  Company Number: None

PATIENT
  Sex: Female
  Weight: 68.0396 kg

DRUGS (1)
  1. MAXALT [Suspect]
     Indication: MIGRAINE
     Dosage: 1 TABLET AS NEEDED PO
     Route: 048
     Dates: start: 20101110, end: 20101112

REACTIONS (2)
  - MENORRHAGIA [None]
  - METRORRHAGIA [None]
